FAERS Safety Report 6230130-3 (Version None)
Quarter: 2009Q2

REPORT INFORMATION
  Report Type: 
  Country: None (occurrence: None)
  Receive Date: 20090615
  Receipt Date: 20090605
  Transmission Date: 20091009
  Serious: Yes (Death, Congenital Anomaly)
  Sender: FDA-Public Use
  Company Number: US-AVENTIS-200915095US

PATIENT
  Sex: Female

DRUGS (9)
  1. LASIX [Suspect]
     Dosage: DOSE: UNK
     Route: 064
  2. NORVASC [Suspect]
     Dosage: DOSE: UNK
     Route: 064
  3. MYCOPHENOLATE MOFETIL [Suspect]
     Route: 064
  4. METOPROLOL SUCCINATE [Suspect]
     Dosage: DOSE: UNK
     Route: 064
  5. PRENATAL VITAMINS                  /01549301/ [Concomitant]
     Dosage: DOSE: UNK
     Route: 064
  6. EPOGEN [Concomitant]
     Dosage: DOSE: UNK
     Route: 064
  7. TACROLIMUS [Concomitant]
     Indication: RENAL TRANSPLANT
     Dosage: DOSE: 3 MG AM, 2MG PM
     Route: 064
  8. PREDNISONE [Concomitant]
     Indication: PROPHYLAXIS
     Route: 064
  9. ACYCLOVIR [Concomitant]
     Indication: HERPES ZOSTER
     Dosage: DOSE: UNK
     Route: 064

REACTIONS (2)
  - DRUG EXPOSURE DURING PREGNANCY [None]
  - MULTIPLE CONGENITAL ABNORMALITIES [None]
